FAERS Safety Report 9922486 (Version 1)
Quarter: 2014Q1

REPORT INFORMATION
  Report Type: Spontaneous
  Country: US (occurrence: US)
  Receive Date: 20140225
  Receipt Date: 20140225
  Transmission Date: 20141002
  Serious: No
  Sender: FDA-Public Use
  Company Number: US-TEVA-464204USA

PATIENT
  Age: 65 Year
  Sex: Female
  Weight: 83.99 kg

DRUGS (5)
  1. QNASL [Suspect]
     Indication: HYPERSENSITIVITY
     Dates: start: 201312
  2. ADVAIR [Concomitant]
  3. ZYFLO [Concomitant]
  4. NEXIUM [Concomitant]
  5. PREMARIN [Concomitant]

REACTIONS (10)
  - Pyrexia [Not Recovered/Not Resolved]
  - Sinusitis [Not Recovered/Not Resolved]
  - Burning sensation [Not Recovered/Not Resolved]
  - Rhinorrhoea [Not Recovered/Not Resolved]
  - Headache [Not Recovered/Not Resolved]
  - Nasal discomfort [Not Recovered/Not Resolved]
  - Feeling abnormal [Recovered/Resolved]
  - Cough [Not Recovered/Not Resolved]
  - Inflammation [Unknown]
  - Pain [Unknown]
